FAERS Safety Report 25501938 (Version 1)
Quarter: 2025Q3

REPORT INFORMATION
  Report Type: Spontaneous
  Country: EU (occurrence: EU)
  Receive Date: 20250702
  Receipt Date: 20250702
  Transmission Date: 20251020
  Serious: Yes (Hospitalization, Other)
  Sender: NOVITIUM PHARMA
  Company Number: EU-NOVITIUMPHARMA-2025ITNVP01493

PATIENT
  Age: 39 Year
  Sex: Male

DRUGS (10)
  1. PREDNISONE [Suspect]
     Active Substance: PREDNISONE
     Indication: Systemic lupus erythematosus
  2. PREDNISONE [Suspect]
     Active Substance: PREDNISONE
     Dates: start: 201903
  3. PREDNISONE [Suspect]
     Active Substance: PREDNISONE
     Dates: start: 202211
  4. PREDNISONE [Suspect]
     Active Substance: PREDNISONE
     Dosage: TAPERED
  5. HYDROXYCHLOROQUINE [Concomitant]
     Active Substance: HYDROXYCHLOROQUINE
     Indication: Systemic lupus erythematosus
     Dates: start: 201509
  6. AZATHIOPRINE [Concomitant]
     Active Substance: AZATHIOPRINE
     Indication: Systemic lupus erythematosus
  7. BELIMUMAB [Concomitant]
     Active Substance: BELIMUMAB
     Indication: Systemic lupus erythematosus
     Route: 042
     Dates: start: 201901, end: 201903
  8. METHOTREXATE [Concomitant]
     Active Substance: METHOTREXATE
     Indication: Systemic lupus erythematosus
     Dates: start: 201903
  9. METHOTREXATE [Concomitant]
     Active Substance: METHOTREXATE
     Dates: start: 201905
  10. FILGOTINIB [Concomitant]
     Active Substance: FILGOTINIB
     Indication: Rhupus syndrome
     Dates: start: 202211

REACTIONS (3)
  - Sepsis [Unknown]
  - Ulcer [Unknown]
  - Intentional product misuse [Unknown]
